FAERS Safety Report 18096237 (Version 3)
Quarter: 2021Q2

REPORT INFORMATION
  Report Type: Spontaneous
  Country: US (occurrence: US)
  Receive Date: 20200730
  Receipt Date: 20210629
  Transmission Date: 20210717
  Serious: Yes (Hospitalization)
  Sender: FDA-Public Use
  Company Number: US-TEVA-2020-US-1806023

PATIENT
  Age: 46 Year
  Sex: Male

DRUGS (10)
  1. LEUCOVORIN. [Suspect]
     Active Substance: LEUCOVORIN
     Indication: DRUG-INDUCED LIVER INJURY
  2. SODIUM BICARBONATE. [Suspect]
     Active Substance: SODIUM BICARBONATE
     Indication: URINE ALKALINISATION THERAPY
  3. RITUXIMAB. [Concomitant]
     Active Substance: RITUXIMAB
     Indication: B-CELL LYMPHOMA
     Route: 065
  4. GLUCARPIDASE [Suspect]
     Active Substance: GLUCARPIDASE
     Indication: DRUG-INDUCED LIVER INJURY
  5. SODIUM BICARBONATE. [Suspect]
     Active Substance: SODIUM BICARBONATE
     Indication: PROPHYLAXIS
     Route: 042
  6. LEUCOVORIN. [Suspect]
     Active Substance: LEUCOVORIN
     Indication: ACUTE KIDNEY INJURY
  7. GLUCARPIDASE [Suspect]
     Active Substance: GLUCARPIDASE
     Indication: CRYSTAL NEPHROPATHY
     Dosage: 50 UNIT/KG
     Route: 065
  8. METHOTREXATE. [Suspect]
     Active Substance: METHOTREXATE
     Indication: B-CELL LYMPHOMA
     Dosage: 3.5 G/M2 INFUSION OVER 4HOURS; HIGH DOSE
     Route: 050
  9. LEUCOVORIN. [Suspect]
     Active Substance: LEUCOVORIN
     Indication: CRYSTAL NEPHROPATHY
     Route: 065
  10. GLUCARPIDASE [Suspect]
     Active Substance: GLUCARPIDASE
     Indication: ACUTE KIDNEY INJURY

REACTIONS (5)
  - Toxicity to various agents [Recovering/Resolving]
  - Crystal nephropathy [Recovering/Resolving]
  - Acute kidney injury [Recovering/Resolving]
  - Drug-induced liver injury [Unknown]
  - Drug ineffective [Unknown]
